APPROVED DRUG PRODUCT: NADOLOL
Active Ingredient: NADOLOL
Strength: 20MG
Dosage Form/Route: TABLET;ORAL
Application: A210955 | Product #001 | TE Code: AB
Applicant: REGCON HOLDINGS LLC
Approved: Jul 23, 2018 | RLD: No | RS: No | Type: RX